FAERS Safety Report 6411299-4 (Version None)
Quarter: 2009Q4

REPORT INFORMATION
  Report Type: 
  Country: None (occurrence: None)
  Receive Date: 20091023
  Receipt Date: 20091013
  Transmission Date: 20100525
  Serious: Yes (Life-Threatening, Other)
  Sender: FDA-Public Use
  Company Number: FR-PFIZER INC-2007082756

PATIENT
  Age: 44 Year

DRUGS (4)
  1. VFEND [Suspect]
     Indication: ASPERGILLOSIS
     Dosage: UNK
     Dates: start: 20020101, end: 20070901
  2. PROGRAF [Suspect]
  3. CELLCEPT [Suspect]
  4. CORTANCYL [Suspect]

REACTIONS (2)
  - PHOTOSENSITIVITY REACTION [None]
  - SQUAMOUS CELL CARCINOMA [None]
